FAERS Safety Report 19211848 (Version 1)
Quarter: 2021Q2

REPORT INFORMATION
  Report Type: Spontaneous
  Country: SE (occurrence: SE)
  Receive Date: 20210504
  Receipt Date: 20210504
  Transmission Date: 20210717
  Serious: Yes (Hospitalization)
  Sender: FDA-Public Use
  Company Number: SE-BAYER-2021-129297

PATIENT
  Age: 16 Year
  Sex: Female
  Weight: 63 kg

DRUGS (1)
  1. KYLEENA [Suspect]
     Active Substance: LEVONORGESTREL
     Indication: CONTRACEPTION
     Dosage: 17.5 ?G PER DAY, CONTINUOUSLY
     Route: 015
     Dates: start: 202008

REACTIONS (6)
  - Pelvic pain [Unknown]
  - Vulvitis [Unknown]
  - Genital haemorrhage [Unknown]
  - Dyspareunia [Unknown]
  - Cyst rupture [Unknown]
  - Amenorrhoea [Unknown]

NARRATIVE: CASE EVENT DATE: 202009
